FAERS Safety Report 8238577-0 (Version None)
Quarter: 2012Q1

REPORT INFORMATION
  Report Type: 
  Country: None (occurrence: None)
  Receive Date: 20120327
  Receipt Date: 20120319
  Transmission Date: 20120608
  Serious: Yes (Hospitalization, Other)
  Sender: FDA-Public Use
  Company Number: US-ABBOTT-12P-163-0915841-00

PATIENT
  Sex: Female
  Weight: 61.744 kg

DRUGS (4)
  1. HUMIRA [Suspect]
     Indication: RHEUMATOID ARTHRITIS
     Route: 058
     Dates: start: 20110201, end: 20120306
  2. MOTRIN [Concomitant]
     Indication: PROCEDURAL PAIN
     Dates: start: 20120314
  3. METHOTREXATE [Concomitant]
     Indication: RHEUMATOID ARTHRITIS
     Dosage: WEEKLY ON WEDNESDAYS
     Route: 048
  4. HUMIRA [Suspect]
     Route: 058
     Dates: start: 20120318

REACTIONS (4)
  - UTERINE LEIOMYOMA [None]
  - UTERINE ENLARGEMENT [None]
  - ABDOMINAL DISTENSION [None]
  - UTERINE HAEMORRHAGE [None]
